FAERS Safety Report 6489846-6 (Version None)
Quarter: 2009Q4

REPORT INFORMATION
  Report Type: 
  Country: None (occurrence: None)
  Receive Date: 20091211
  Receipt Date: 20091202
  Transmission Date: 20100525
  Serious: Yes (Hospitalization)
  Sender: FDA-Public Use
  Company Number: US-BIOGENIDEC-2009BI039633

PATIENT
  Age: 51 Year
  Sex: Female
  Weight: 111 kg

DRUGS (1)
  1. TYSABRI [Suspect]
     Indication: MULTIPLE SCLEROSIS
     Route: 042
     Dates: start: 20080910

REACTIONS (11)
  - ANXIETY [None]
  - BALANCE DISORDER [None]
  - DYSTONIA [None]
  - FALL [None]
  - FATIGUE [None]
  - HYPOTONIA [None]
  - KNEE ARTHROPLASTY [None]
  - LOSS OF CONTROL OF LEGS [None]
  - MUSCLE SPASTICITY [None]
  - MUSCULAR WEAKNESS [None]
  - NIGHTMARE [None]
